FAERS Safety Report 18630215 (Version 1)
Quarter: 2020Q4

REPORT INFORMATION
  Report Type: Spontaneous
  Country: US (occurrence: US)
  Receive Date: 20201217
  Receipt Date: 20201217
  Transmission Date: 20210114
  Serious: No
  Sender: FDA-Public Use
  Company Number: US-ALVOGEN-2020-ALVOGEN-115499

PATIENT
  Age: 71 Year
  Sex: Female

DRUGS (1)
  1. BUTALBITAL/PARACETAMOL [Suspect]
     Active Substance: ACETAMINOPHEN\BUTALBITAL
     Indication: PRODUCT USED FOR UNKNOWN INDICATION
     Dates: start: 202009, end: 20200920

REACTIONS (3)
  - Nausea [Recovered/Resolved]
  - Product taste abnormal [Recovered/Resolved]
  - Illness [Recovered/Resolved]

NARRATIVE: CASE EVENT DATE: 202009
